FAERS Safety Report 6088818-3 (Version None)
Quarter: 2009Q1

REPORT INFORMATION
  Report Type: 
  Country: None (occurrence: None)
  Receive Date: 20090219
  Receipt Date: 20090205
  Transmission Date: 20090719
  Serious: Yes (Other)
  Sender: FDA-Public Use
  Company Number: 8042480

PATIENT
  Age: 29 Year
  Sex: Male
  Weight: 94 kg

DRUGS (2)
  1. KEPPRA [Suspect]
     Dosage: 3000 MG /D PO
     Route: 048
  2. TEGRETOL [Suspect]
     Dosage: 150 MG /D
     Dates: start: 19990101

REACTIONS (4)
  - AMMONIA INCREASED [None]
  - CONDITION AGGRAVATED [None]
  - CONVULSION [None]
  - HYPERACUSIS [None]
